FAERS Safety Report 22076440 (Version 1)
Quarter: 2023Q1

REPORT INFORMATION
  Report Type: Spontaneous
  Country: FI (occurrence: FI)
  Receive Date: 20230309
  Receipt Date: 20230309
  Transmission Date: 20230418
  Serious: Yes (Hospitalization, Other)
  Sender: FDA-Public Use
  Company Number: FI-ALVOGEN-2023089335

PATIENT
  Age: 62 Year
  Sex: Female

DRUGS (18)
  1. FLUOXETINE HYDROCHLORIDE [Suspect]
     Active Substance: FLUOXETINE HYDROCHLORIDE
     Indication: Product used for unknown indication
     Dates: start: 2008, end: 2009
  2. BISOPROLOL [Suspect]
     Active Substance: BISOPROLOL
     Indication: Product used for unknown indication
     Dosage: STRENGTH: 1.25 MG
  3. QUETIAPINE [Suspect]
     Active Substance: QUETIAPINE
     Indication: Product used for unknown indication
     Dates: start: 2017
  4. CLOZAPINE [Suspect]
     Active Substance: CLOZAPINE
     Indication: Schizophrenia
     Dates: start: 1982, end: 1995
  5. CLOZAPINE [Suspect]
     Active Substance: CLOZAPINE
     Indication: Schizophrenia
     Dates: start: 2022, end: 202206
  6. CLOZAPINE [Suspect]
     Active Substance: CLOZAPINE
     Indication: Schizophrenia
     Dates: start: 202210
  7. CLOZAPINE [Suspect]
     Active Substance: CLOZAPINE
     Indication: Schizophrenia
     Dates: start: 202209, end: 202210
  8. CLOZAPINE [Suspect]
     Active Substance: CLOZAPINE
     Indication: Schizophrenia
     Dates: start: 2008, end: 202106
  9. CLOZAPINE [Suspect]
     Active Substance: CLOZAPINE
     Indication: Schizophrenia
     Dates: start: 2021, end: 2022
  10. CLOZAPINE [Suspect]
     Active Substance: CLOZAPINE
     Indication: Schizophrenia
     Dates: start: 202206, end: 202209
  11. CHOLECALCIFEROL [Concomitant]
     Active Substance: CHOLECALCIFEROL
     Indication: Product used for unknown indication
  12. Absenor [Concomitant]
     Indication: Epilepsy
     Dates: start: 2010
  13. NORSPAN [Concomitant]
     Active Substance: BUPRENORPHINE
     Indication: Product used for unknown indication
  14. CITALOPRAM [Concomitant]
     Active Substance: CITALOPRAM HYDROBROMIDE
     Indication: Product used for unknown indication
     Dates: start: 2009
  15. CLONAZEPAM [Concomitant]
     Active Substance: CLONAZEPAM
     Indication: Epilepsy
     Dates: start: 1983
  16. ARIPIPRAZOLE [Concomitant]
     Active Substance: ARIPIPRAZOLE
     Indication: Product used for unknown indication
     Dates: start: 201905
  17. ZUCLOPENTHIXOL [Concomitant]
     Active Substance: ZUCLOPENTHIXOL
     Indication: Product used for unknown indication
     Dates: start: 2012, end: 2016
  18. MELATONIN VITABALANS [Concomitant]
     Indication: Product used for unknown indication
     Dates: start: 2012, end: 2016

REACTIONS (12)
  - Neutropenia [Recovered/Resolved]
  - Cataract [Unknown]
  - Ovarian germ cell teratoma benign [Unknown]
  - Epilepsy [Unknown]
  - Neuroleptic malignant syndrome [Unknown]
  - Altered state of consciousness [Unknown]
  - COVID-19 [Unknown]
  - Neoplasm [Unknown]
  - Blood test abnormal [Unknown]
  - Memory impairment [Unknown]
  - Seizure [Unknown]
  - Dizziness [Unknown]

NARRATIVE: CASE EVENT DATE: 19830101
